FAERS Safety Report 5153552-0 (Version None)
Quarter: 2006Q4

REPORT INFORMATION
  Report Type: 
  Country: None (occurrence: None)
  Receive Date: 20061113
  Receipt Date: 20061026
  Transmission Date: 20070319
  Serious: Yes (Other)
  Sender: FDA-Public Use
  Company Number: 2006RR-04295

PATIENT
  Age: 60 Year
  Sex: Female
  Weight: 57 kg

DRUGS (2)
  1. FLUCONAZOLE [Suspect]
     Dosage: 50 MG, QD, ORAL
     Route: 048
     Dates: end: 20050101
  2. ITRACONAZOLE [Suspect]
     Dosage: ORAL
     Route: 048
     Dates: end: 20050101

REACTIONS (4)
  - BLOOD CREATININE INCREASED [None]
  - BLOOD UREA INCREASED [None]
  - LIVER FUNCTION TEST ABNORMAL [None]
  - MALAISE [None]
